FAERS Safety Report 5410014-0 (Version None)
Quarter: 2007Q3

REPORT INFORMATION
  Report Type: 
  Country: None (occurrence: None)
  Receive Date: 20070713
  Receipt Date: 20070425
  Transmission Date: 20080115
  Serious: No
  Sender: FDA-Public Use
  Company Number: 2007SP001513

PATIENT
  Age: 71 Year
  Sex: Female
  Weight: 79.3795 kg

DRUGS (10)
  1. LUNESTA [Suspect]
     Indication: INSOMNIA
     Dosage: 2 MG;HS;ORAL; 1 MG;ORAL; 3 MG;HS;ORAL
     Route: 048
     Dates: start: 20070101, end: 20070101
  2. LUNESTA [Suspect]
     Indication: INSOMNIA
     Dosage: 2 MG;HS;ORAL; 1 MG;ORAL; 3 MG;HS;ORAL
     Route: 048
     Dates: start: 20070101, end: 20070101
  3. LUNESTA [Suspect]
     Indication: INSOMNIA
     Dosage: 2 MG;HS;ORAL; 1 MG;ORAL; 3 MG;HS;ORAL
     Route: 048
     Dates: start: 20070301
  4. VYTORIN [Concomitant]
  5. CLONIDINE [Concomitant]
  6. ATENOLOL [Concomitant]
  7. RANITIDINE [Concomitant]
  8. LISINOPRIL [Concomitant]
  9. ATACAND HCT [Concomitant]
  10. METFORMIN HCL [Concomitant]

REACTIONS (3)
  - DRUG INEFFECTIVE [None]
  - MIDDLE INSOMNIA [None]
  - NASAL CONGESTION [None]
